FAERS Safety Report 9397174 (Version 1)
Quarter: 2013Q3

REPORT INFORMATION
  Report Type: Spontaneous
  Country: FR (occurrence: FR)
  Receive Date: 20130712
  Receipt Date: 20130712
  Transmission Date: 20140515
  Serious: Yes (Hospitalization)
  Sender: FDA-Public Use
  Company Number: PHHY2013FR073523

PATIENT
  Sex: Female

DRUGS (1)
  1. LEPONEX [Suspect]
     Dosage: UNK UKN, UNK

REACTIONS (1)
  - Lung infection [Recovered/Resolved]
